FAERS Safety Report 6789245-3 (Version None)
Quarter: 2010Q2

REPORT INFORMATION
  Report Type: 
  Country: None (occurrence: None)
  Receive Date: 20100623
  Receipt Date: 20080910
  Transmission Date: 20101027
  Serious: No
  Sender: FDA-Public Use
  Company Number: US-PFIZER INC-2008054734

PATIENT
  Sex: Female
  Weight: 63.636 kg

DRUGS (3)
  1. XALATAN [Suspect]
     Route: 047
     Dates: start: 20080101
  2. CARDIOVASCULAR SYSTEM DRUGS [Concomitant]
  3. OTHER HYPNOTICS AND SEDATIVES [Concomitant]

REACTIONS (1)
  - EYE IRRITATION [None]
